FAERS Safety Report 9105750 (Version 1)
Quarter: 2013Q1

REPORT INFORMATION
  Report Type: Spontaneous
  Country: US (occurrence: US)
  Receive Date: 20130220
  Receipt Date: 20130220
  Transmission Date: 20140127
  Serious: No
  Sender: FDA-Public Use
  Company Number: US-PFIZER INC-2013060516

PATIENT
  Age: 35 Year
  Sex: Male

DRUGS (1)
  1. EFFEXOR XR [Suspect]
     Dosage: 300 MG, 1X/DAY (150MG, 2 EVERY MORNING)

REACTIONS (2)
  - Depression [Unknown]
  - Mood altered [Unknown]
